FAERS Safety Report 7480816-8 (Version None)
Quarter: 2011Q2

REPORT INFORMATION
  Report Type: 
  Country: None (occurrence: None)
  Receive Date: 20110516
  Receipt Date: 20110412
  Transmission Date: 20111010
  Serious: Yes (Hospitalization, Other)
  Sender: FDA-Public Use
  Company Number: US-BAYER-201033889NA

PATIENT
  Age: 24 Year
  Sex: Female
  Weight: 113.38 kg

DRUGS (1)
  1. YAZ [Suspect]
     Indication: PRODUCT USED FOR UNKNOWN INDICATION
     Dosage: UNK
     Route: 048
     Dates: start: 20080101, end: 20080101

REACTIONS (3)
  - INJURY [None]
  - PAIN [None]
  - CHOLELITHIASIS [None]
